FAERS Safety Report 19800018 (Version 2)
Quarter: 2024Q1

REPORT INFORMATION
  Report Type: Spontaneous
  Country: FR (occurrence: FR)
  Receive Date: 20210907
  Receipt Date: 20240222
  Transmission Date: 20240410
  Serious: Yes (Hospitalization, Other)
  Sender: FDA-Public Use
  Company Number: FR-OTSUKA-2021_030574

PATIENT
  Age: 55 Year
  Sex: Male

DRUGS (3)
  1. ABILIFY [Suspect]
     Active Substance: ARIPIPRAZOLE
     Indication: Product used for unknown indication
     Dosage: 15 MG, QD (SINCE THE BEGINNING OF THE YEAR, FOR 2-3 YR)
     Route: 065
  2. ABILIFY [Suspect]
     Active Substance: ARIPIPRAZOLE
     Dosage: 10 MG (EVERY 2 DAYS)
     Route: 065
  3. ABILIFY [Suspect]
     Active Substance: ARIPIPRAZOLE
     Dosage: 15 UNK
     Route: 065

REACTIONS (2)
  - Rhabdomyolysis [Not Recovered/Not Resolved]
  - Dermatomyositis [Not Recovered/Not Resolved]
